FAERS Safety Report 7184309-7 (Version None)
Quarter: 2010Q4

REPORT INFORMATION
  Report Type: 
  Country: None (occurrence: None)
  Receive Date: 20101123
  Receipt Date: 20100820
  Transmission Date: 20110411
  Serious: Yes (Other)
  Sender: FDA-Public Use
  Company Number: 017541

PATIENT
  Sex: Male
  Weight: 74.8 kg

DRUGS (3)
  1. CIMZIA [Suspect]
     Indication: CROHN'S DISEASE
     Dosage: (2 INJECTIONS SUBCUTANEOUS)
     Route: 058
     Dates: start: 20091201
  2. PREDNISONE [Concomitant]
  3. VICODIN [Concomitant]

REACTIONS (3)
  - ABDOMINAL PAIN [None]
  - CROHN'S DISEASE [None]
  - RECTAL HAEMORRHAGE [None]
